FAERS Safety Report 5926480-8 (Version None)
Quarter: 2008Q4

REPORT INFORMATION
  Report Type: 
  Country: None (occurrence: None)
  Receive Date: 20081022
  Receipt Date: 20081015
  Transmission Date: 20090506
  Serious: Yes (Other)
  Sender: FDA-Public Use
  Company Number: PHHY2008AR25038

PATIENT
  Sex: Female

DRUGS (3)
  1. DIOVAN [Suspect]
     Indication: HYPERTENSION
     Dosage: 1/2 PER DAY
     Route: 048
  2. DIOVAN [Suspect]
     Dosage: 1/2 PER DAY
     Route: 048
     Dates: start: 20071001
  3. ANTIINFLAMMATORY/ANTIRHEUMATIC PRODUCTS [Suspect]
     Indication: OSTEOARTHRITIS

REACTIONS (2)
  - BLOOD UREA INCREASED [None]
  - RENAL FAILURE [None]
